FAERS Safety Report 17936122 (Version 1)
Quarter: 2020Q2

REPORT INFORMATION
  Report Type: Other
  Country: FR (occurrence: FR)
  Receive Date: 20200624
  Receipt Date: 20200624
  Transmission Date: 20200714
  Serious: Yes (Death, Hospitalization)
  Sender: FDA-Public Use
  Company Number: FR-REGULIS CONSULTING LTD-2086605

PATIENT
  Age: 93 Year
  Sex: Male

DRUGS (8)
  1. METHYLENE BLUE. [Suspect]
     Active Substance: METHYLENE BLUE
     Indication: SHOCK
  2. LERCANIDIPINE [Interacting]
     Active Substance: LERCANIDIPINE
     Route: 048
  3. NOREPINEPHRINE. [Suspect]
     Active Substance: NOREPINEPHRINE
     Route: 050
  4. FLUINDIONE [Suspect]
     Active Substance: FLUINDIONE
     Route: 048
  5. INSULIN [Suspect]
     Active Substance: INSULIN NOS
     Route: 065
  6. COVERAM [Interacting]
     Active Substance: AMLODIPINE\PERINDOPRIL
     Route: 048
  7. DOBUTAMINE [Suspect]
     Active Substance: DOBUTAMINE HYDROCHLORIDE
  8. CALCIUM CHLORIDE. [Suspect]
     Active Substance: CALCIUM CHLORIDE
     Route: 065

REACTIONS (13)
  - Hypothermia [Fatal]
  - Cholestasis [Fatal]
  - Pneumonia aspiration [Fatal]
  - Drug interaction [Fatal]
  - Hepatic failure [Fatal]
  - Seizure [Fatal]
  - Shock [Fatal]
  - Acute respiratory distress syndrome [Fatal]
  - Renal failure [Fatal]
  - Toxicity to various agents [Fatal]
  - Multiple organ dysfunction syndrome [Fatal]
  - Drug ineffective [Fatal]
  - Intentional overdose [Fatal]
